FAERS Safety Report 15877675 (Version 6)
Quarter: 2019Q2

REPORT INFORMATION
  Report Type: Report from Study
  Country: US (occurrence: US)
  Receive Date: 20190128
  Receipt Date: 20190516
  Transmission Date: 20190711
  Serious: Yes (Other)
  Sender: FDA-Public Use
  Company Number: US-ROCHE-2189565

PATIENT
  Age: 80 Year
  Sex: Female

DRUGS (14)
  1. ESBRIET [Suspect]
     Active Substance: PIRFENIDONE
     Dosage: 1 TAB 3 TIMES A DAY WITH MEALS
     Route: 048
  2. CLOPIDOGREL [Concomitant]
     Active Substance: CLOPIDOGREL BISULFATE
     Route: 065
  3. FISH OIL [Concomitant]
     Active Substance: FISH OIL
     Route: 065
  4. LEVOTHYROXIN [Concomitant]
     Active Substance: LEVOTHYROXINE
     Route: 065
  5. ESBRIET [Suspect]
     Active Substance: PIRFENIDONE
     Indication: IDIOPATHIC PULMONARY FIBROSIS
     Dosage: TAKE 1 TAB 3 TIMES DAILY X1 WEEK WITH MEALS
     Route: 048
     Dates: start: 20180829
  6. ESBRIET [Suspect]
     Active Substance: PIRFENIDONE
     Dosage: TAKE 3 TAB 3 TIMES DAILY X1 WEEK WITH MEALS
     Route: 048
  7. ENBREL [Concomitant]
     Active Substance: ETANERCEPT
     Dosage: 50MG/ML
     Route: 065
  8. ESBRIET [Suspect]
     Active Substance: PIRFENIDONE
     Dosage: 1 TABLET
     Route: 048
  9. ESBRIET [Suspect]
     Active Substance: PIRFENIDONE
     Dosage: TAKE 2 TAB 3 TIMES DAILY X1 WEEK WITH MEALS
     Route: 048
  10. ESBRIET [Suspect]
     Active Substance: PIRFENIDONE
     Dosage: 1 TABLET, ONGOING
     Route: 048
     Dates: start: 20180903
  11. DOXYCYCLINE. [Concomitant]
     Active Substance: DOXYCYCLINE
     Route: 065
  12. LOSARTAN POTASSIUM. [Concomitant]
     Active Substance: LOSARTAN POTASSIUM
     Route: 065
  13. METFORMIN HCL [Concomitant]
     Active Substance: METFORMIN HYDROCHLORIDE
     Route: 065
  14. FERROUS SULFATE. [Concomitant]
     Active Substance: FERROUS SULFATE
     Dosage: TAB325 65
     Route: 065

REACTIONS (25)
  - Deafness [Not Recovered/Not Resolved]
  - Nausea [Not Recovered/Not Resolved]
  - Apathy [Recovered/Resolved]
  - Vomiting [Not Recovered/Not Resolved]
  - Feeling abnormal [Not Recovered/Not Resolved]
  - Pneumonia [Not Recovered/Not Resolved]
  - Abdominal pain [Recovered/Resolved]
  - Headache [Recovered/Resolved]
  - Throat irritation [Not Recovered/Not Resolved]
  - Abdominal pain [Not Recovered/Not Resolved]
  - Stomatitis [Not Recovered/Not Resolved]
  - Depression [Not Recovered/Not Resolved]
  - Nausea [Recovered/Resolved]
  - Influenza [Not Recovered/Not Resolved]
  - Hypersensitivity [Not Recovered/Not Resolved]
  - Chest pain [Recovered/Resolved]
  - Headache [Not Recovered/Not Resolved]
  - Chapped lips [Not Recovered/Not Resolved]
  - Memory impairment [Not Recovered/Not Resolved]
  - Blindness [Not Recovered/Not Resolved]
  - Abdominal distension [Not Recovered/Not Resolved]
  - Vision blurred [Recovered/Resolved]
  - Oral pain [Not Recovered/Not Resolved]
  - Lip pain [Not Recovered/Not Resolved]
  - Salivary gland disorder [Not Recovered/Not Resolved]

NARRATIVE: CASE EVENT DATE: 20190330
